FAERS Safety Report 7364295-7 (Version None)
Quarter: 2011Q1

REPORT INFORMATION
  Report Type: 
  Country: None (occurrence: None)
  Receive Date: 20110321
  Receipt Date: 20110311
  Transmission Date: 20110831
  Serious: Yes (Hospitalization)
  Sender: FDA-Public Use
  Company Number: B0705983A

PATIENT
  Age: 73 Year
  Sex: Male

DRUGS (1)
  1. SERETIDE [Suspect]
     Indication: CHRONIC OBSTRUCTIVE PULMONARY DISEASE
     Dosage: 500MCG IN THE MORNING
     Route: 055
     Dates: end: 20110305

REACTIONS (3)
  - PNEUMONIA [None]
  - PNEUMATOSIS [None]
  - INFECTION [None]
